FAERS Safety Report 23558103 (Version 1)
Quarter: 2024Q1

REPORT INFORMATION
  Report Type: Spontaneous
  Country: US (occurrence: US)
  Receive Date: 20240223
  Receipt Date: 20240223
  Transmission Date: 20240410
  Serious: No
  Sender: FDA-Public Use
  Company Number: US-GSKCCFUS-Case-01941556_AE-107901

PATIENT
  Sex: Female

DRUGS (1)
  1. NUCALA [Suspect]
     Active Substance: MEPOLIZUMAB
     Indication: Eosinophilic granulomatosis with polyangiitis
     Dosage: 100 MG, CYC
     Route: 058

REACTIONS (4)
  - Fatigue [Recovered/Resolved]
  - Cough [Not Recovered/Not Resolved]
  - Decreased interest [Unknown]
  - Underdose [Unknown]
